FAERS Safety Report 25591556 (Version 1)
Quarter: 2025Q3

REPORT INFORMATION
  Report Type: Spontaneous
  Country: EU (occurrence: EU)
  Receive Date: 20250722
  Receipt Date: 20250722
  Transmission Date: 20251021
  Serious: Yes (Other)
  Sender: ALEXION PHARMACEUTICALS
  Company Number: EU-AstraZeneca-CH-00845638A

PATIENT
  Age: 76 Year
  Sex: Female

DRUGS (8)
  1. FASLODEX [Suspect]
     Active Substance: FULVESTRANT
  2. FASLODEX [Suspect]
     Active Substance: FULVESTRANT
  3. ENHERTU [Suspect]
     Active Substance: FAM-TRASTUZUMAB DERUXTECAN-NXKI
     Indication: Breast cancer
     Route: 065
  4. ENHERTU [Suspect]
     Active Substance: FAM-TRASTUZUMAB DERUXTECAN-NXKI
     Route: 065
  5. PACLITAXEL [Suspect]
     Active Substance: PACLITAXEL
  6. CAPECITABINE [Suspect]
     Active Substance: CAPECITABINE
  7. ABEMACICLIB [Suspect]
     Active Substance: ABEMACICLIB
  8. LETROZOLE [Concomitant]
     Active Substance: LETROZOLE

REACTIONS (4)
  - Anaemia [Unknown]
  - Gastrointestinal toxicity [Recovering/Resolving]
  - Nausea [Recovering/Resolving]
  - Vomiting [Recovering/Resolving]
